FAERS Safety Report 9016186 (Version 1)
Quarter: 2013Q1

REPORT INFORMATION
  Report Type: Spontaneous
  Country: US (occurrence: US)
  Receive Date: 20130116
  Receipt Date: 20130116
  Transmission Date: 20140127
  Serious: Yes (Other)
  Sender: FDA-Public Use
  Company Number: US-009507513-0911USA00825

PATIENT
  Age: 13 Year
  Sex: Female
  Weight: 49.9 kg

DRUGS (3)
  1. SINGULAIR [Suspect]
     Indication: SEASONAL ALLERGY
     Dosage: UNK UNK, QD
     Route: 048
     Dates: start: 20070415, end: 20070807
  2. NASONEX [Concomitant]
  3. ELESTAT [Concomitant]

REACTIONS (1)
  - Hallucination, auditory [Recovered/Resolved]
